FAERS Safety Report 6466432-5 (Version None)
Quarter: 2009Q4

REPORT INFORMATION
  Report Type: 
  Country: None (occurrence: None)
  Receive Date: 20091202
  Receipt Date: 20081110
  Transmission Date: 20100525
  Serious: No
  Sender: FDA-Public Use
  Company Number: US-AMGEN-KDL318172

PATIENT
  Sex: Female

DRUGS (6)
  1. ENBREL [Suspect]
     Indication: RHEUMATOID ARTHRITIS
     Route: 058
     Dates: start: 20081020
  2. METHOTREXATE [Concomitant]
     Dates: start: 20080301
  3. PREDNISONE [Concomitant]
  4. PRILOSEC [Concomitant]
  5. FOLIC ACID [Concomitant]
  6. FOSAMAX [Concomitant]

REACTIONS (7)
  - INJECTION SITE ERYTHEMA [None]
  - INJECTION SITE INDURATION [None]
  - INJECTION SITE PAIN [None]
  - INJECTION SITE PRURITUS [None]
  - INJECTION SITE SWELLING [None]
  - NASOPHARYNGITIS [None]
  - RHEUMATOID ARTHRITIS [None]
